FAERS Safety Report 8832720 (Version 2)
Quarter: 2012Q4

REPORT INFORMATION
  Report Type: 
  Country: US (occurrence: US)
  Receive Date: 20121010
  Receipt Date: 20121214
  Transmission Date: 20130627
  Serious: Yes (Hospitalization)
  Sender: FDA-Public Use
  Company Number: US-BAYER-2012-103570

PATIENT
  Age: 29 Year
  Sex: Female
  Weight: 71.2 kg

DRUGS (2)
  1. YASMIN [Suspect]
  2. OCELLA [Suspect]

REACTIONS (3)
  - Pulmonary embolism [None]
  - Deep vein thrombosis [None]
  - Deep vein thrombosis [None]
